FAERS Safety Report 5196290-0 (Version None)
Quarter: 2006Q4

REPORT INFORMATION
  Report Type: 
  Country: None (occurrence: None)
  Receive Date: 20061222
  Receipt Date: 20061208
  Transmission Date: 20070319
  Serious: Yes (Other)
  Sender: FDA-Public Use
  Company Number: 2006152352

PATIENT
  Sex: Female

DRUGS (2)
  1. HEMABATE [Suspect]
     Indication: POSTPARTUM HAEMORRHAGE
     Dosage: INTRAMUSCULAR
     Route: 030
  2. DRUG, UNSPECIFIED (DRUG, UNSPECIFIED) [Concomitant]

REACTIONS (1)
  - CIRCULATORY COLLAPSE [None]
